FAERS Safety Report 17388787 (Version 4)
Quarter: 2020Q2

REPORT INFORMATION
  Report Type: Spontaneous
  Country: US (occurrence: US)
  Receive Date: 20200207
  Receipt Date: 20200617
  Transmission Date: 20200713
  Serious: Yes (Hospitalization, Other)
  Sender: FDA-Public Use
  Company Number: US-PFIZER INC-2020052922

PATIENT
  Age: 76 Year
  Sex: Male
  Weight: 73.48 kg

DRUGS (1)
  1. TOVIAZ [Suspect]
     Active Substance: FESOTERODINE FUMARATE
     Indication: URINARY INCONTINENCE
     Dosage: 8 MG, 1X/DAY (ABOUT 10 OR 11 O^CLOCK AT NIGHT)
     Route: 048

REACTIONS (7)
  - Cellulitis [Unknown]
  - Condition aggravated [Unknown]
  - Paresis [Unknown]
  - Visual impairment [Unknown]
  - Blood pressure abnormal [Unknown]
  - Dysgraphia [Unknown]
  - Dyskinesia [Not Recovered/Not Resolved]
